FAERS Safety Report 7741921-1 (Version None)
Quarter: 2011Q3

REPORT INFORMATION
  Report Type: 
  Country: None (occurrence: None)
  Receive Date: 20110912
  Receipt Date: 20110830
  Transmission Date: 20111222
  Serious: Yes (Hospitalization, Other)
  Sender: FDA-Public Use
  Company Number: US-JNJFOC-20110901810

PATIENT
  Sex: Female
  Weight: 70.76 kg

DRUGS (14)
  1. OXYBUTYNIN HYDROCHLORIDE [Concomitant]
     Indication: BLADDER DISORDER
     Route: 048
     Dates: start: 20100101
  2. OXYCODONE HCL [Concomitant]
     Indication: BREAKTHROUGH PAIN
     Dosage: ONCE EVERY 4-6 HOURS
     Route: 048
  3. LYRICA [Concomitant]
     Indication: FIBROMYALGIA
     Route: 048
     Dates: start: 20090101
  4. ATENOLOL [Concomitant]
     Indication: HYPERTENSION
     Route: 048
     Dates: start: 20050101
  5. LORAZEPAM [Concomitant]
     Indication: ANXIETY
     Route: 048
     Dates: start: 20090501
  6. DURAGESIC-100 [Suspect]
     Dosage: 0NE 12.5MCG + ONE 25MCG PATCH
     Route: 062
     Dates: start: 20100101
  7. UNKNOWN MEDICATION [Concomitant]
     Indication: HEADACHE
     Dosage: ONCE EVERY 4-6 HOURS
     Route: 048
     Dates: start: 20100101
  8. CELEBREX [Concomitant]
     Indication: ARTHRITIS
     Route: 048
     Dates: start: 20090101
  9. IPRATROPIUM BROMIDE AND ALBUTEROL SULFATE [Concomitant]
     Indication: ASTHMA
     Dosage: 2 PUFFS TWICE DAILY
     Route: 055
     Dates: start: 20070101
  10. PRISTIQ [Concomitant]
     Route: 048
     Dates: start: 20070101
  11. OMEPRAZOLE [Concomitant]
     Indication: GASTROOESOPHAGEAL REFLUX DISEASE
     Route: 048
     Dates: start: 20100101
  12. DURAGESIC-100 [Suspect]
     Indication: BACK PAIN
     Dosage: 0NE 12.5MCG + ONE 25MCG PATCH
     Route: 062
     Dates: start: 20100101
  13. CARISOPRODOL [Concomitant]
     Indication: MUSCLE SPASMS
     Dosage: ONCE EVERY 6 HOURS
     Route: 048
  14. LORAZEPAM [Concomitant]
     Indication: POST-TRAUMATIC STRESS DISORDER
     Route: 048
     Dates: start: 20090501

REACTIONS (8)
  - SENSORY DISTURBANCE [None]
  - WRONG TECHNIQUE IN DRUG USAGE PROCESS [None]
  - DYSPNOEA [None]
  - AMNESIA [None]
  - MALAISE [None]
  - PRODUCT ADHESION ISSUE [None]
  - PNEUMONIA ASPIRATION [None]
  - CONFUSIONAL STATE [None]
